FAERS Safety Report 6344200-2 (Version None)
Quarter: 2009Q3

REPORT INFORMATION
  Report Type: 
  Country: None (occurrence: None)
  Receive Date: 20090908
  Receipt Date: 20090828
  Transmission Date: 20100115
  Serious: Yes (Other)
  Sender: FDA-Public Use
  Company Number: BR-PFIZER INC-2009261273

PATIENT
  Age: 29 Year

DRUGS (3)
  1. CELEBRA [Suspect]
     Indication: ARTHRITIS
     Dosage: 200 MG, 2X/DAY
     Route: 048
     Dates: start: 20090827
  2. DIPYRONE [Concomitant]
     Indication: PAIN
     Dosage: UNK
     Dates: start: 20090827
  3. DEPO-PROVERA [Concomitant]
     Indication: CONTRACEPTION
     Dosage: UNK

REACTIONS (4)
  - HYPOTENSION [None]
  - PAIN [None]
  - SLUGGISHNESS [None]
  - TONGUE DISORDER [None]
